FAERS Safety Report 7073999-5 (Version None)
Quarter: 2010Q4

REPORT INFORMATION
  Report Type: 
  Country: None (occurrence: None)
  Receive Date: 20101028
  Receipt Date: 20101028
  Transmission Date: 20110411
  Serious: No
  Sender: FDA-Public Use
  Company Number: None

PATIENT
  Age: 55 Year
  Sex: Female
  Weight: 92.9874 kg

DRUGS (1)
  1. RANEXA [Suspect]
     Indication: ANGINA PECTORIS
     Dosage: 500MG TWICE A DAY PO
     Route: 048
     Dates: start: 20100717, end: 20100810

REACTIONS (6)
  - BLOOD URINE PRESENT [None]
  - IRIS INJURY [None]
  - MYALGIA [None]
  - PAIN IN EXTREMITY [None]
  - RASH GENERALISED [None]
  - TACHYCARDIA [None]
